FAERS Safety Report 9659673 (Version 2)
Quarter: 2013Q4

REPORT INFORMATION
  Report Type: Spontaneous
  Country: CH (occurrence: CH)
  Receive Date: 20131031
  Receipt Date: 20131210
  Transmission Date: 20140711
  Serious: Yes (Hospitalization)
  Sender: FDA-Public Use
  Company Number: CH-JNJFOC-20131014687

PATIENT
  Age: 58 Year
  Sex: Female

DRUGS (11)
  1. REMICADE [Suspect]
     Indication: COLITIS ULCERATIVE
     Route: 042
     Dates: start: 2012, end: 20130123
  2. REMICADE [Suspect]
     Indication: COLITIS ULCERATIVE
     Route: 042
     Dates: start: 2009, end: 2012
  3. CELLCEPT [Suspect]
     Indication: LUNG TRANSPLANT
     Route: 048
     Dates: start: 2003
  4. PREDNISONE [Suspect]
     Indication: LUNG TRANSPLANT
     Route: 048
     Dates: start: 2003
  5. PROGRAF [Suspect]
     Indication: LUNG TRANSPLANT
     Route: 048
     Dates: start: 2003
  6. SINGULAIR [Concomitant]
     Route: 048
  7. ESOMEPRAZOLE [Concomitant]
     Route: 048
  8. COSAAR [Concomitant]
     Route: 048
  9. MESALAZINE [Concomitant]
     Route: 065
  10. AZITHROMYCIN [Concomitant]
     Dosage: 3 PER WEEK
     Route: 048
  11. AZATHIOPRINE [Concomitant]
     Route: 065

REACTIONS (4)
  - Pulmonary tuberculosis [Recovering/Resolving]
  - Tuberculosis of central nervous system [Recovering/Resolving]
  - Epilepsy [Unknown]
  - Drug ineffective [Unknown]
